FAERS Safety Report 17504509 (Version 1)
Quarter: 2020Q1

REPORT INFORMATION
  Report Type: Spontaneous
  Country: US (occurrence: US)
  Receive Date: 20200305
  Receipt Date: 20200305
  Transmission Date: 20200409
  Serious: No
  Sender: FDA-Public Use
  Company Number: US-SA-2020SA054168

PATIENT
  Sex: Male

DRUGS (1)
  1. ALIROCUMAB [Suspect]
     Active Substance: ALIROCUMAB
     Indication: ACUTE MYOCARDIAL INFARCTION
     Dosage: 75 MG, QOW
     Route: 058

REACTIONS (1)
  - Rash [Recovered/Resolved]
